FAERS Safety Report 10413793 (Version 1)
Quarter: 2014Q3

REPORT INFORMATION
  Report Type: Spontaneous
  Country: AU (occurrence: None)
  Receive Date: 20140825
  Receipt Date: 20140825
  Transmission Date: 20150326
  Serious: Yes (Hospitalization)
  Sender: FDA-Public Use
  Company Number: IMP_07842_2014

PATIENT
  Age: 67 Year
  Sex: Male

DRUGS (12)
  1. ALLOPURINOL. [Concomitant]
     Active Substance: ALLOPURINOL
  2. BOWEL PREPARATION [Suspect]
     Active Substance: UNSPECIFIED INGREDIENT
     Indication: COLONOSCOPY
     Dosage: DF
  3. FLUOXETINE [Concomitant]
     Active Substance: FLUOXETINE\FLUOXETINE HYDROCHLORIDE
  4. ATORVASTIN [Concomitant]
     Active Substance: ATORVASTATIN
  5. METFORMIN [Suspect]
     Active Substance: METFORMIN HYDROCHLORIDE
     Indication: PRODUCT USED FOR UNKNOWN INDICATION
     Dosage: 100 MG UKNOWN; AFTER COLONOSCOPY
  6. GLICLAZIDE [Concomitant]
     Active Substance: GLICLAZIDE
  7. PANTOPRAZOLE [Concomitant]
     Active Substance: PANTOPRAZOLE SODIUM
  8. PERINDOPRIL [Suspect]
     Active Substance: PERINDOPRIL
     Indication: PRODUCT USED FOR UNKNOWN INDICATION
  9. INDAPAMIDE (INDAPAMIDE) [Suspect]
     Active Substance: INDAPAMIDE
     Indication: PRODUCT USED FOR UNKNOWN INDICATION
     Dosage: 2.5 MG FREQUENCY UKNOWN
  10. ISOPHANE INSULIN [Concomitant]
     Active Substance: INSULIN NOS
  11. WARFARIN [Concomitant]
     Active Substance: WARFARIN
  12. FELODIPINE. [Concomitant]
     Active Substance: FELODIPINE

REACTIONS (11)
  - Renal failure acute [None]
  - Continuous haemodiafiltration [None]
  - Lactic acidosis [None]
  - Electrocardiogram ST segment depression [None]
  - Coma scale abnormal [None]
  - Blood pressure increased [None]
  - Metabolic acidosis [None]
  - Dehydration [None]
  - Blood pressure decreased [None]
  - Sinus tachycardia [None]
  - Troponin increased [None]
